FAERS Safety Report 23909502 (Version 4)
Quarter: 2024Q3

REPORT INFORMATION
  Report Type: Spontaneous
  Country: NZ (occurrence: NZ)
  Receive Date: 20240528
  Receipt Date: 20240723
  Transmission Date: 20241017
  Serious: Yes (Hospitalization, Other)
  Sender: MYLAN
  Company Number: NZ-MYLANLABS-2024M1047239

PATIENT
  Sex: Male

DRUGS (2)
  1. CLOZARIL [Suspect]
     Active Substance: CLOZAPINE
     Indication: Schizophrenia
     Dosage: UNK
     Route: 048
     Dates: start: 20000921, end: 202405
  2. CLOZARIL [Suspect]
     Active Substance: CLOZAPINE
     Dosage: UNK (START DATE: RECOMMENCED TODAY, 10-JUN-2024)
     Route: 048
     Dates: start: 202406

REACTIONS (4)
  - Hospitalisation [Unknown]
  - Schizophrenia [Unknown]
  - Loss of consciousness [Unknown]
  - Catatonia [Unknown]
